FAERS Safety Report 23063737 (Version 1)
Quarter: 2023Q4

REPORT INFORMATION
  Report Type: Spontaneous
  Country: US (occurrence: None)
  Receive Date: 20231013
  Receipt Date: 20231013
  Transmission Date: 20240110
  Serious: Yes (Hospitalization)
  Sender: FDA-Public Use
  Company Number: None

PATIENT
  Age: 55 Year
  Sex: Male

DRUGS (1)
  1. EMPAGLIFLOZIN [Suspect]
     Active Substance: EMPAGLIFLOZIN
     Dates: start: 20220228, end: 20220819

REACTIONS (18)
  - Skin ulcer [None]
  - Vulvovaginal pain [None]
  - Abdominal pain [None]
  - Chills [None]
  - Hypophagia [None]
  - Lethargy [None]
  - Fall [None]
  - Atrial fibrillation [None]
  - Haemoglobin decreased [None]
  - Blood potassium increased [None]
  - Blood urea increased [None]
  - Blood creatinine increased [None]
  - Computerised tomogram abnormal [None]
  - Vulvovaginal swelling [None]
  - Sepsis [None]
  - Necrotising soft tissue infection [None]
  - Diabetes mellitus inadequate control [None]
  - White blood cell count increased [None]

NARRATIVE: CASE EVENT DATE: 20220819
